FAERS Safety Report 11211110 (Version 1)
Quarter: 2015Q2

REPORT INFORMATION
  Report Type: Spontaneous
  Country: CA (occurrence: CA)
  Receive Date: 20150623
  Receipt Date: 20150623
  Transmission Date: 20150821
  Serious: Yes (Death, Life-Threatening, Hospitalization, Other)
  Sender: FDA-Public Use
  Company Number: CA-AMGEN-CANSP2015059498

PATIENT
  Age: 41 Year
  Sex: Male

DRUGS (5)
  1. ENBREL [Suspect]
     Active Substance: ETANERCEPT
     Indication: ANKYLOSING SPONDYLITIS
  2. ENBREL [Suspect]
     Active Substance: ETANERCEPT
     Indication: PSORIASIS
     Dosage: 50 MG, QWK
     Route: 058
     Dates: start: 201112
  3. CELECOXIB. [Suspect]
     Active Substance: CELECOXIB
     Indication: PRODUCT USED FOR UNKNOWN INDICATION
     Dosage: UNK
     Route: 065
     Dates: end: 201203
  4. LEFLUNOMIDE. [Suspect]
     Active Substance: LEFLUNOMIDE
     Indication: PRODUCT USED FOR UNKNOWN INDICATION
     Dosage: UNK
     Route: 065
     Dates: end: 201202
  5. ENBREL [Suspect]
     Active Substance: ETANERCEPT
     Indication: PSORIATIC ARTHROPATHY

REACTIONS (16)
  - Upper gastrointestinal haemorrhage [Unknown]
  - Hepatic enzyme abnormal [Unknown]
  - Blood creatinine increased [Unknown]
  - Implant site infection [Unknown]
  - Acute kidney injury [Unknown]
  - Encephalopathy [Unknown]
  - Ascites [Unknown]
  - Autoimmune haemolytic anaemia [Unknown]
  - Splenomegaly [Unknown]
  - Sepsis [Unknown]
  - Ankylosing spondylitis [Unknown]
  - Disseminated intravascular coagulation [Unknown]
  - Liver function test abnormal [Unknown]
  - Granuloma [Fatal]
  - Haemolytic anaemia [Unknown]
  - Pancytopenia [Recovering/Resolving]

NARRATIVE: CASE EVENT DATE: 2012
